FAERS Safety Report 9735770 (Version 1)
Quarter: 2013Q4

REPORT INFORMATION
  Report Type: Spontaneous
  Country: US (occurrence: US)
  Receive Date: 20131206
  Receipt Date: 20131206
  Transmission Date: 20140711
  Serious: No
  Sender: FDA-Public Use
  Company Number: US-GILEAD-2009-0023013

PATIENT
  Sex: Female
  Weight: 117.93 kg

DRUGS (21)
  1. LETAIRIS [Suspect]
     Indication: PULMONARY ARTERIAL HYPERTENSION
     Route: 048
     Dates: start: 20090522
  2. NORVASC [Suspect]
  3. NEXIUM [Suspect]
  4. ADVAIR [Suspect]
  5. LEVOXYL [Suspect]
  6. FUROSEMIDE [Concomitant]
  7. ALLOPURINOL [Concomitant]
  8. PREMARIN [Concomitant]
  9. LOVASTATIN [Concomitant]
  10. BENAZEPRIL [Concomitant]
  11. HYDROCHLOROTHIAZIDE [Concomitant]
  12. KLOR-CON [Concomitant]
  13. BENICAR [Concomitant]
  14. OMEPRAZOLE [Concomitant]
  15. DILTIAZEM [Concomitant]
  16. ASPIRIN [Concomitant]
  17. TYLENOL [Concomitant]
  18. LESCOL [Concomitant]
  19. ATACAND [Concomitant]
  20. PACERONE [Concomitant]
  21. XENICAL [Concomitant]

REACTIONS (3)
  - Aphagia [Unknown]
  - Dizziness [Unknown]
  - Abdominal pain upper [Unknown]
